FAERS Safety Report 20228105 (Version 1)
Quarter: 2021Q4

REPORT INFORMATION
  Report Type: Spontaneous
  Country: US (occurrence: US)
  Receive Date: 20211224
  Receipt Date: 20211224
  Transmission Date: 20220303
  Serious: Yes (Death, Other)
  Sender: FDA-Public Use
  Company Number: US-009507513-2112USA006807

PATIENT
  Age: 48 Year
  Sex: Male

DRUGS (12)
  1. PRINIVIL [Suspect]
     Active Substance: LISINOPRIL
     Route: 048
  2. AMLODIPINE [Suspect]
     Active Substance: AMLODIPINE BESYLATE
     Route: 048
  3. NIFEDIPINE [Suspect]
     Active Substance: NIFEDIPINE
     Route: 048
  4. CARVEDILOL [Suspect]
     Active Substance: CARVEDILOL
     Route: 048
  5. HYDRALAZINE [Suspect]
     Active Substance: HYDRALAZINE HYDROCHLORIDE
     Route: 048
  6. ACETAMINOPHEN\HYDROCODONE [Suspect]
     Active Substance: ACETAMINOPHEN\HYDROCODONE
     Route: 048
  7. GABAPENTIN [Suspect]
     Active Substance: GABAPENTIN
     Route: 048
  8. METOLAZONE [Suspect]
     Active Substance: METOLAZONE
     Route: 048
  9. BUMETANIDE [Suspect]
     Active Substance: BUMETANIDE
     Route: 048
  10. SERTRALINE [Suspect]
     Active Substance: SERTRALINE HYDROCHLORIDE
     Route: 048
  11. LEVOTHYROXINE [Suspect]
     Active Substance: LEVOTHYROXINE
     Route: 048
  12. ATORVASTATIN [Suspect]
     Active Substance: ATORVASTATIN
     Route: 048

REACTIONS (1)
  - Suspected suicide [Fatal]
